FAERS Safety Report 5136038-9 (Version None)
Quarter: 2006Q4

REPORT INFORMATION
  Report Type: 
  Country: None (occurrence: None)
  Receive Date: 20061020
  Receipt Date: 20061009
  Transmission Date: 20070319
  Serious: Yes (Hospitalization)
  Sender: FDA-Public Use
  Company Number: 2006BL005885

PATIENT
  Age: 53 Year
  Sex: Female

DRUGS (5)
  1. PREDNISOLONE SODIUM PHOSPHATE [Suspect]
     Indication: POLYARTHRITIS
     Dosage: 20 MILLIGRAMS;ORAL
     Route: 048
     Dates: start: 20060904, end: 20060910
  2. PREDNISOLONE SODIUM PHOSPHATE [Suspect]
     Indication: RASH
     Dosage: 20 MILLIGRAMS;ORAL
     Route: 048
     Dates: start: 20060904, end: 20060910
  3. FLUOXETINE/N/A/ (FLUOXETINE /N/A/) [Suspect]
     Indication: DEPRESSION
     Dosage: SEE IMAGE
     Route: 048
     Dates: start: 20060731, end: 20060818
  4. FLUOXETINE/N/A/ (FLUOXETINE /N/A/) [Suspect]
     Indication: DEPRESSION
     Dosage: SEE IMAGE
     Route: 048
     Dates: start: 20060817, end: 20060830
  5. ACETAMINOPHEN [Concomitant]

REACTIONS (3)
  - CONDITION AGGRAVATED [None]
  - POLYARTHRITIS [None]
  - RASH [None]
